FAERS Safety Report 13840732 (Version 1)
Quarter: 2017Q3

REPORT INFORMATION
  Report Type: Spontaneous
  Country: US (occurrence: US)
  Receive Date: 20170807
  Receipt Date: 20170807
  Transmission Date: 20171127
  Serious: No
  Sender: FDA-Public Use
  Company Number: US-OTSUKA-2017_011051

PATIENT
  Sex: Female

DRUGS (1)
  1. ONZETRA [Suspect]
     Active Substance: SUMATRIPTAN SUCCINATE
     Indication: ACCIDENTAL EXPOSURE TO PRODUCT
     Dosage: UNK, SINGLE (ONCE)
     Route: 045
     Dates: start: 20170516, end: 20170516

REACTIONS (4)
  - Nasal discomfort [Recovered/Resolved]
  - Accidental exposure to product [Unknown]
  - Lacrimation increased [Recovered/Resolved]
  - Feeling abnormal [Recovered/Resolved]

NARRATIVE: CASE EVENT DATE: 20170516
